FAERS Safety Report 8313107-3 (Version None)
Quarter: 2012Q2

REPORT INFORMATION
  Report Type: 
  Country: None (occurrence: None)
  Receive Date: 20120426
  Receipt Date: 20120419
  Transmission Date: 20120825
  Serious: Yes (Other)
  Sender: FDA-Public Use
  Company Number: BR-PFIZER INC-2012098572

PATIENT
  Age: 83 Year
  Sex: Male

DRUGS (3)
  1. XALATAN [Suspect]
     Indication: GLAUCOMA
     Dosage: 3 UG, 1X/DAY
     Route: 047
     Dates: start: 20090101, end: 20110101
  2. LOSARTAN [Concomitant]
     Dosage: UNK
     Dates: start: 20111001
  3. LATANOPROST [Suspect]
     Indication: GLAUCOMA
     Dosage: [LATANOPROST 3UG] / [TIMOLOL MALEATE 300UG], ONCE DAILY
     Route: 047

REACTIONS (2)
  - GLAUCOMA [None]
  - INTRAOCULAR PRESSURE INCREASED [None]
